FAERS Safety Report 4467929-X (Version None)
Quarter: 2004Q4

REPORT INFORMATION
  Report Type: 
  Country: None (occurrence: None)
  Receive Date: 20041004
  Receipt Date: 20040923
  Transmission Date: 20050328
  Serious: Yes (Hospitalization)
  Sender: FDA-Public Use
  Company Number: STA-AE-04-MTX-446

PATIENT
  Age: 69 Year
  Sex: Male

DRUGS (2)
  1. METHOTREXATE [Suspect]
     Indication: RHEUMATOID ARTHRITIS
     Dosage: 7.5 TO 20 MG ONCE WEEKLY AS PER PROTOCOL
     Dates: start: 20020509, end: 20020731
  2. PLACEBO FOR ETANERCEPT (PLACEBO FOR ETANERCEPT, INJECTION) [Suspect]
     Indication: RHEUMATOID ARTHRITIS
     Dosage: 2 INJECTIONS PER WEEK, SC
     Route: 058
     Dates: start: 20020509, end: 20020731

REACTIONS (3)
  - LUNG SQUAMOUS CELL CARCINOMA STAGE UNSPECIFIED [None]
  - METAPLASIA [None]
  - PRODUCTIVE COUGH [None]
